FAERS Safety Report 22830477 (Version 2)
Quarter: 2024Q3

REPORT INFORMATION
  Report Type: Spontaneous
  Country: MY (occurrence: MY)
  Receive Date: 20230817
  Receipt Date: 20240702
  Transmission Date: 20241017
  Serious: Yes (Death)
  Sender: ROCHE
  Company Number: MY-ROCHE-3406120

PATIENT
  Age: 59 Year

DRUGS (3)
  1. TECENTRIQ [Suspect]
     Active Substance: ATEZOLIZUMAB
     Indication: Hepatocellular carcinoma
     Dosage: 60 MG/ML
     Route: 065
  2. AVASTIN [Suspect]
     Active Substance: BEVACIZUMAB
     Indication: Hepatocellular carcinoma
     Route: 065
  3. LENVATINIB [Suspect]
     Active Substance: LENVATINIB
     Indication: Hepatocellular carcinoma
     Route: 065

REACTIONS (1)
  - Death [Fatal]
